FAERS Safety Report 9537724 (Version 2)
Quarter: 2013Q3

REPORT INFORMATION
  Report Type: Report from Study
  Country: ZM (occurrence: ZM)
  Receive Date: 20130919
  Receipt Date: 20130919
  Transmission Date: 20140515
  Serious: Yes (Death, Life-Threatening)
  Sender: FDA-Public Use
  Company Number: ZM-009507513-1203USA02634

PATIENT
  Age: 46 Year
  Sex: Male

DRUGS (3)
  1. RALTEGRAVIR POTASSIUM [Suspect]
     Indication: HIV INFECTION
     Dates: start: 20110429, end: 20120319
  2. LOPINAVIR (+) RITONAVIR [Suspect]
     Indication: HIV INFECTION
     Dosage: UNK
     Dates: start: 20110429, end: 20120319
  3. CO-ARTEM [Concomitant]
     Dosage: UNK
     Dates: start: 20120303, end: 20120305

REACTIONS (5)
  - Hepatic encephalopathy [Fatal]
  - Hepatocellular carcinoma [Fatal]
  - Jaundice acholuric [Not Recovered/Not Resolved]
  - Sepsis [Not Recovered/Not Resolved]
  - Anaemia [Not Recovered/Not Resolved]
